FAERS Safety Report 18800021 (Version 1)
Quarter: 2021Q1

REPORT INFORMATION
  Report Type: Spontaneous
  Country: IN (occurrence: IN)
  Receive Date: 20210128
  Receipt Date: 20210128
  Transmission Date: 20210419
  Serious: Yes (Death, Hospitalization)
  Sender: FDA-Public Use
  Company Number: IN-MYLANLABS-2021M1004894

PATIENT
  Age: 45 Year
  Sex: Male

DRUGS (3)
  1. NIMOTUZUMAB [Suspect]
     Active Substance: NIMOTUZUMAB
     Indication: GLIOBLASTOMA
     Dosage: 200 MILLIGRAM 15 DAYS
     Route: 065
  2. TEMOZOLOMIDE. [Suspect]
     Active Substance: TEMOZOLOMIDE
     Indication: GLIOBLASTOMA
     Dosage: 100 MILLIGRAM, QD 7 DAYS....
     Route: 065
  3. TEMOZOLOMIDE. [Suspect]
     Active Substance: TEMOZOLOMIDE
     Dosage: 250 MILLIGRAM, QD OVER...
     Route: 065

REACTIONS (2)
  - Glioblastoma [Fatal]
  - Metastases to spinal cord [Fatal]
